FAERS Safety Report 6589404-9 (Version None)
Quarter: 2010Q1

REPORT INFORMATION
  Report Type: 
  Country: None (occurrence: None)
  Receive Date: 20100205
  Receipt Date: 20100128
  Transmission Date: 20100710
  Serious: Yes (Other)
  Sender: FDA-Public Use
  Company Number: ERP09000039

PATIENT
  Age: 72 Year
  Sex: Female

DRUGS (2)
  1. DIDRONEL [Suspect]
     Indication: EXTRASKELETAL OSSIFICATION
     Dosage: 800 MG, 1/DAY, ORAL
     Route: 048
     Dates: start: 20091030, end: 20091201
  2. DIDRONEL [Suspect]
     Indication: HIP ARTHROPLASTY
     Dosage: 800 MG, 1/DAY, ORAL
     Route: 048
     Dates: start: 20091030, end: 20091201

REACTIONS (1)
  - HYPERCALCAEMIA [None]
